FAERS Safety Report 4369941-8 (Version None)
Quarter: 2004Q2

REPORT INFORMATION
  Report Type: 
  Country: None (occurrence: None)
  Receive Date: 20040525
  Receipt Date: 20040507
  Transmission Date: 20050107
  Serious: Yes (Life-Threatening, Hospitalization, Disabling)
  Sender: FDA-Public Use
  Company Number: DSA_24384_2004

PATIENT
  Age: 69 Year
  Sex: Female

DRUGS (9)
  1. ENALAPRIL MALEATE [Suspect]
     Dosage: 10 MG Q DAY PO
     Route: 048
  2. AMTRIPTYLINE HYDROCHLORIDE [Suspect]
     Dosage: 75 MG QHS PO
     Route: 048
  3. SPIRONOLACTONE [Suspect]
     Indication: HYPERKALAEMIA
     Dosage: 25 MG Q DAY
  4. DIGOXIN [Suspect]
     Indication: BRADYCARDIA
     Dosage: 125 MCG Q DAY
  5. WARFARIN SODIUM [Concomitant]
  6. LEVOTHYROXINE SODIUM [Concomitant]
  7. BUMETANIDE [Concomitant]
  8. BACLOFEN [Concomitant]
  9. TETRABENAZINE [Concomitant]

REACTIONS (5)
  - BRADYCARDIA [None]
  - CONDITION AGGRAVATED [None]
  - ELECTROCARDIOGRAM CHANGE [None]
  - HYPERKALAEMIA [None]
  - RENAL FAILURE ACUTE [None]
